FAERS Safety Report 5349416-X (Version None)
Quarter: 2007Q2

REPORT INFORMATION
  Report Type: 
  Country: None (occurrence: None)
  Receive Date: 20070607
  Receipt Date: 20070531
  Transmission Date: 20071010
  Serious: Yes (Hospitalization)
  Sender: FDA-Public Use
  Company Number: JP-ROCHE-490511

PATIENT
  Age: 52 Year
  Sex: Male

DRUGS (4)
  1. TICLOPIDINE HCL [Suspect]
     Indication: ANGINA PECTORIS
     Route: 048
     Dates: start: 20070305, end: 20070315
  2. ASPIRIN [Concomitant]
     Dates: start: 20070305
  3. SELBEX [Concomitant]
     Dates: start: 20070305, end: 20070315
  4. NICORANDIL [Concomitant]
     Dates: start: 20070305, end: 20070309

REACTIONS (3)
  - PRURITUS [None]
  - PYREXIA [None]
  - RASH GENERALISED [None]
